FAERS Safety Report 13001916 (Version 2)
Quarter: 2016Q4

REPORT INFORMATION
  Report Type: Report from Study
  Country: US (occurrence: US)
  Receive Date: 20161206
  Receipt Date: 20161210
  Transmission Date: 20170207
  Serious: Yes (Other)
  Sender: FDA-Public Use
  Company Number: US-AMGEN-USASL2016169802

PATIENT
  Sex: Male

DRUGS (1)
  1. ENBREL [Suspect]
     Active Substance: ETANERCEPT
     Indication: ANKYLOSING SPONDYLITIS
     Dosage: 50 MG, UNK
     Route: 065
     Dates: start: 20061101

REACTIONS (7)
  - Ankylosing spondylitis [Unknown]
  - Pain [Unknown]
  - Swelling [Unknown]
  - Drug dose omission [Unknown]
  - Gait disturbance [Unknown]
  - Hypokinesia [Unknown]
  - Impaired work ability [Unknown]
